FAERS Safety Report 15392921 (Version 1)
Quarter: 2018Q3

REPORT INFORMATION
  Report Type: Spontaneous
  Country: FR (occurrence: FR)
  Receive Date: 20180917
  Receipt Date: 20180917
  Transmission Date: 20181010
  Serious: Yes (Hospitalization)
  Sender: FDA-Public Use
  Company Number: FR-PFIZER INC-2018370215

PATIENT
  Age: 73 Year
  Sex: Female
  Weight: 65.6 kg

DRUGS (11)
  1. ZAMUDOL [Concomitant]
     Active Substance: TRAMADOL HYDROCHLORIDE
  2. COUMADINE [Concomitant]
     Active Substance: WARFARIN SODIUM
  3. PARACETAMOL [Concomitant]
     Active Substance: ACETAMINOPHEN
  4. SERETIDE [Concomitant]
     Active Substance: FLUTICASONE PROPIONATE\SALMETEROL XINAFOATE
  5. TRIFLUCAN [Suspect]
     Active Substance: FLUCONAZOLE
     Indication: MUCOSAL INFLAMMATION
     Dosage: 1 DF, 1X/DAY
     Route: 048
     Dates: start: 20180802, end: 20180809
  6. VOLTAREN [DICLOFENAC DIETHYLAMINE] [Concomitant]
     Active Substance: DICLOFENAC DIETHYLAMINE
  7. CORTANCYL [Concomitant]
     Active Substance: PREDNISONE
  8. ESOMEPRAZOLE [Concomitant]
     Active Substance: ESOMEPRAZOLE
  9. SULFARLEM [Concomitant]
     Active Substance: ANETHOLTRITHION
  10. SPIRIVA [Concomitant]
     Active Substance: TIOTROPIUM BROMIDE MONOHYDRATE
  11. AZITHROMYCIN ANHYDROUS. [Concomitant]
     Active Substance: AZITHROMYCIN ANHYDROUS

REACTIONS (1)
  - Bone marrow failure [Recovering/Resolving]

NARRATIVE: CASE EVENT DATE: 20180811
